FAERS Safety Report 19508170 (Version 2)
Quarter: 2021Q3

REPORT INFORMATION
  Report Type: Report from Study
  Country: US (occurrence: US)
  Receive Date: 20210708
  Receipt Date: 20210729
  Transmission Date: 20211014
  Serious: Yes (Other)
  Sender: FDA-Public Use
  Company Number: US-BAYER-2021-169415

PATIENT
  Age: 57 Year
  Sex: Female

DRUGS (3)
  1. STIVARGA [Suspect]
     Active Substance: REGORAFENIB
     Indication: BRAIN NEOPLASM MALIGNANT
     Dosage: DAILY DOSE 160 MG FOR 21 DAYS
     Route: 048
     Dates: start: 20210615
  2. STIVARGA [Suspect]
     Active Substance: REGORAFENIB
     Indication: BRAIN NEOPLASM MALIGNANT
     Dosage: DAILY DOSE 120 MG
     Route: 048
  3. TEMOZOLOMIDE. [Concomitant]
     Active Substance: TEMOZOLOMIDE
     Dosage: UNK

REACTIONS (8)
  - Lethargy [Unknown]
  - Asthenia [Not Recovered/Not Resolved]
  - Fatigue [Unknown]
  - Abdominal pain [Not Recovered/Not Resolved]
  - Erythema [Not Recovered/Not Resolved]
  - Product use complaint [Not Recovered/Not Resolved]
  - Off label use [None]
  - Hemiparesis [Unknown]

NARRATIVE: CASE EVENT DATE: 20210615
